FAERS Safety Report 8243222-4 (Version None)
Quarter: 2012Q1

REPORT INFORMATION
  Report Type: 
  Country: None (occurrence: None)
  Receive Date: 20120329
  Receipt Date: 20120315
  Transmission Date: 20120608
  Serious: Yes (Death, Hospitalization)
  Sender: FDA-Public Use
  Company Number: US-MYLANLABS-2012S1006031

PATIENT
  Age: 63 Year
  Sex: Female

DRUGS (4)
  1. BEVACIZUMAB [Suspect]
     Indication: METASTATIC CARCINOID TUMOUR
     Route: 065
  2. OXALIPLATIN [Suspect]
     Indication: METASTATIC CARCINOID TUMOUR
     Route: 065
  3. LEUCOVORIN CALCIUM [Suspect]
     Indication: METASTATIC CARCINOID TUMOUR
     Route: 065
  4. FLUOROURACIL [Suspect]
     Indication: METASTATIC CARCINOID TUMOUR
     Route: 065

REACTIONS (1)
  - INTESTINAL PERFORATION [None]
